FAERS Safety Report 8805101 (Version 1)
Quarter: 2012Q4

REPORT INFORMATION
  Report Type: 
  Country: US (occurrence: US)
  Receive Date: 20120924
  Receipt Date: 20120924
  Transmission Date: 20130627
  Serious: No
  Sender: FDA-Public Use
  Company Number: US-ALLERGAN-1211040US

PATIENT
  Age: 82 Year
  Sex: Female

DRUGS (2)
  1. LUMIGAN� 0.01% [Suspect]
     Indication: INCREASED INTRAOCULAR PRESSURE
     Dosage: 2 Gtt, qhs
     Route: 047
     Dates: start: 20120809
  2. ASA [Concomitant]
     Indication: HEART DISORDER
     Dosage: 81 mg, UNK
     Route: 048

REACTIONS (3)
  - Headache [Not Recovered/Not Resolved]
  - Photophobia [Not Recovered/Not Resolved]
  - Eye irritation [Not Recovered/Not Resolved]
